FAERS Safety Report 4531161-1 (Version None)
Quarter: 2004Q4

REPORT INFORMATION
  Report Type: 
  Country: None (occurrence: None)
  Receive Date: 20041216
  Receipt Date: 20041208
  Transmission Date: 20050328
  Serious: Yes (Hospitalization)
  Sender: FDA-Public Use
  Company Number: STA-AE-04-MTX-624

PATIENT
  Age: 49 Year
  Sex: Male

DRUGS (3)
  1. METHOTREXATE [Suspect]
     Indication: RHEUMATOID ARTHRITIS
     Dosage: 7.5 MG 1X PER 1 DAY, ORAL
     Route: 048
     Dates: start: 19991110, end: 20041004
  2. REMICADE [Suspect]
     Indication: RHEUMATOID ARTHRITIS
     Dosage: 200 MG 1X PER 1 MTH, INTRAVENOUS
     Route: 042
     Dates: start: 20000824, end: 20000916
  3. ARCOXIA [Concomitant]

REACTIONS (2)
  - INTESTINAL FISTULA [None]
  - PERIANAL ABSCESS [None]
